FAERS Safety Report 21722705 (Version 1)
Quarter: 2022Q4

REPORT INFORMATION
  Report Type: Report from Study
  Country: US (occurrence: US)
  Receive Date: 20221213
  Receipt Date: 20221213
  Transmission Date: 20230113
  Serious: No
  Sender: FDA-Public Use
  Company Number: US-ABBVIE-4196502

PATIENT
  Age: 60 Year
  Sex: Female

DRUGS (4)
  1. HUMIRA [Suspect]
     Active Substance: ADALIMUMAB
     Indication: Rheumatoid arthritis
     Dosage: CITRATE FREE.?LAST ADMINISTRATION WAS 2022
     Route: 058
     Dates: start: 20221028
  2. MODERNA COVID-19 VACCINE [Concomitant]
     Active Substance: ELASOMERAN
     Indication: COVID-19 immunisation
     Dosage: 1 IN ONCE.?FIRST DOSE
     Route: 030
     Dates: start: 20210329, end: 20210329
  3. MODERNA COVID-19 VACCINE [Concomitant]
     Active Substance: ELASOMERAN
     Indication: COVID-19 immunisation
     Dosage: 1 IN ONCE.?SECOND DOSE
     Route: 030
     Dates: start: 20210428, end: 20210428
  4. MODERNA COVID-19 VACCINE [Concomitant]
     Active Substance: ELASOMERAN
     Indication: COVID-19 immunisation
     Dosage: 1 IN ONCE.?BOOSTER DOSE
     Route: 030
     Dates: start: 20211210, end: 20211210

REACTIONS (3)
  - Sinusitis [Unknown]
  - Sinus congestion [Unknown]
  - Asthma [Unknown]

NARRATIVE: CASE EVENT DATE: 20221101
